FAERS Safety Report 7018661-X (Version None)
Quarter: 2010Q3

REPORT INFORMATION
  Report Type: 
  Country: None (occurrence: None)
  Receive Date: 20100924
  Receipt Date: 20100913
  Transmission Date: 20110219
  Serious: Yes (Congenital Anomaly)
  Sender: FDA-Public Use
  Company Number: 702569

PATIENT

DRUGS (1)
  1. METHOTREXATE [Suspect]
     Dosage: INTRAUTERINE
     Route: 015

REACTIONS (2)
  - KIDNEY MALFORMATION [None]
  - PATERNAL DRUGS AFFECTING FOETUS [None]
